FAERS Safety Report 4768064-3 (Version None)
Quarter: 2005Q3

REPORT INFORMATION
  Report Type: 
  Country: None (occurrence: None)
  Receive Date: 20050906
  Receipt Date: 20050516
  Transmission Date: 20060218
  Serious: No
  Sender: FDA-Public Use
  Company Number: 2005-BP-08104BP

PATIENT
  Age: 47 Year
  Sex: Female
  Weight: 65 kg

DRUGS (8)
  1. SPIRIVA [Suspect]
     Indication: ASTHMA
     Dosage: 18 MCG (18 MCG, QD) IH
     Route: 055
     Dates: start: 20040301, end: 20040824
  2. ORTHO-NOVUM (CONLUNETT) [Concomitant]
  3. ADVAIR DISKUS 100/50 [Concomitant]
  4. SINGULAIR [Concomitant]
  5. ZYRTEC [Concomitant]
  6. PREVACID [Concomitant]
  7. ALBUTEROL METERED DOSE INHALER (SALBUTAMOL SULFATE) [Concomitant]
  8. NASONEX [Concomitant]

REACTIONS (4)
  - HYPOAESTHESIA ORAL [None]
  - LIP EXFOLIATION [None]
  - PARAESTHESIA ORAL [None]
  - SWELLING FACE [None]
